FAERS Safety Report 4667251-2 (Version None)
Quarter: 2005Q2

REPORT INFORMATION
  Report Type: 
  Country: None (occurrence: None)
  Receive Date: 20050421
  Receipt Date: 20050318
  Transmission Date: 20051028
  Serious: Yes (Hospitalization)
  Sender: FDA-Public Use
  Company Number: 2005046209

PATIENT
  Age: 37 Year
  Sex: Female

DRUGS (1)
  1. RELPAX [Suspect]
     Indication: MIGRAINE
     Dosage: UNKNOWN (40 MG, UNKNOWN), UNKNOWN

REACTIONS (2)
  - CHEST PAIN [None]
  - DYSPNOEA [None]
